FAERS Safety Report 6414784-4 (Version None)
Quarter: 2009Q4

REPORT INFORMATION
  Report Type: 
  Country: None (occurrence: None)
  Receive Date: 20091026
  Receipt Date: 20091026
  Transmission Date: 20100525
  Serious: No
  Sender: FDA-Public Use
  Company Number: None

PATIENT
  Age: 76 Year
  Sex: Female
  Weight: 29.4838 kg

DRUGS (3)
  1. VANCOMYCIN [Suspect]
     Indication: WOUND INFECTION
     Dosage: 1200 MG Q18H IV DRIP
     Route: 041
     Dates: start: 20090907, end: 20091021
  2. FLUCONAZOLE [Concomitant]
  3. ZOSYN [Concomitant]

REACTIONS (1)
  - RENAL FAILURE ACUTE [None]
